FAERS Safety Report 4649554-0 (Version None)
Quarter: 2005Q2

REPORT INFORMATION
  Report Type: 
  Country: None (occurrence: None)
  Receive Date: 20050427
  Receipt Date: 20050414
  Transmission Date: 20051028
  Serious: Yes (Hospitalization)
  Sender: FDA-Public Use
  Company Number: 2005-BP-03322NB (1)

PATIENT
  Age: 79 Year
  Sex: Male

DRUGS (4)
  1. SPIRIVA [Suspect]
     Indication: EMPHYSEMA
     Dosage: 18 MCG (18 MCG)
     Route: 055
     Dates: start: 20050203, end: 20050217
  2. THEOLONG (THEOPHYLLINE) [Concomitant]
  3. SPELEAR (FUDOSTEINE) [Concomitant]
  4. PLETAL [Concomitant]

REACTIONS (2)
  - DRY MOUTH [None]
  - SPUTUM RETENTION [None]
